FAERS Safety Report 8381959-7 (Version None)
Quarter: 2012Q2

REPORT INFORMATION
  Report Type: 
  Country: None (occurrence: None)
  Receive Date: 20120508
  Receipt Date: 20120420
  Transmission Date: 20120825
  Serious: Yes (Hospitalization)
  Sender: FDA-Public Use
  Company Number: 26022

PATIENT
  Sex: Male
  Weight: 121.3 kg

DRUGS (7)
  1. BENADRYL [Suspect]
     Indication: ALPHA-1 ANTI-TRYPSIN DEFICIENCY
     Dosage: 50MG, WEEKLY, PO
     Route: 048
     Dates: start: 20111001
  2. CARVEDILOL [Concomitant]
  3. HOME OXYGEN [Concomitant]
  4. GLASSIA [Suspect]
     Indication: ALPHA-1 ANTI-TRYPSIN DEFICIENCY
     Dosage: 7000MG, WEEKLY, IV
     Route: 042
     Dates: start: 20111001
  5. IMMUNE GLOBULIN INTRAVENOUS (HUMAN) [Concomitant]
  6. COUMADIN [Concomitant]
  7. EMLA [Concomitant]

REACTIONS (6)
  - TOOTH REPAIR [None]
  - RESTLESS LEGS SYNDROME [None]
  - FATIGUE [None]
  - PNEUMONIA [None]
  - FEELING JITTERY [None]
  - SOMNOLENCE [None]
